FAERS Safety Report 18017401 (Version 1)
Quarter: 2020Q3

REPORT INFORMATION
  Report Type: Spontaneous
  Country: GB (occurrence: GB)
  Receive Date: 20200714
  Receipt Date: 20200714
  Transmission Date: 20201103
  Serious: Yes (Other)
  Sender: FDA-Public Use
  Company Number: GB-TEVA-2020-GB-1800107

PATIENT
  Age: 72 Year
  Sex: Male
  Weight: 69.85 kg

DRUGS (6)
  1. ATORVASTATIN [Concomitant]
     Active Substance: ATORVASTATIN
  2. FUROSEMIDE. [Concomitant]
     Active Substance: FUROSEMIDE
  3. INSULIN [Concomitant]
     Active Substance: INSULIN NOS
  4. AMIODARONE [Suspect]
     Active Substance: AMIODARONE
     Dosage: 200 MG
     Route: 048
     Dates: start: 20191223, end: 20200615
  5. BISOPROLOL [Concomitant]
     Active Substance: BISOPROLOL
  6. DABIGATRAN [Concomitant]
     Active Substance: DABIGATRAN

REACTIONS (3)
  - Headache [Unknown]
  - Coordination abnormal [Unknown]
  - Depression [Unknown]
